FAERS Safety Report 5889731-4 (Version None)
Quarter: 2008Q3

REPORT INFORMATION
  Report Type: 
  Country: None (occurrence: None)
  Receive Date: 20080919
  Receipt Date: 20080912
  Transmission Date: 20090109
  Serious: Yes (Disabling)
  Sender: FDA-Public Use
  Company Number: US-ALLERGAN-0811505US

PATIENT
  Sex: Female

DRUGS (2)
  1. RESTASIS [Suspect]
     Indication: DRY EYE
     Dosage: 1 GTT, BID
     Route: 047
     Dates: start: 20080601
  2. OSTEOPOROSIS MEDICATIONS [Concomitant]
     Indication: OSTEOPOROSIS

REACTIONS (2)
  - REFRACTION DISORDER [None]
  - VISION BLURRED [None]
